FAERS Safety Report 9359231 (Version 3)
Quarter: 2013Q3

REPORT INFORMATION
  Report Type: Spontaneous
  Country: US (occurrence: US)
  Receive Date: 20130620
  Receipt Date: 20130731
  Transmission Date: 20140515
  Serious: Yes (Other)
  Sender: FDA-Public Use
  Company Number: US-MYLANLABS-2013S1013028

PATIENT
  Age: 48 Year
  Sex: Female
  Weight: 64.41 kg

DRUGS (2)
  1. COSYNTROPIN FOR INJECTION [Suspect]
     Indication: DIAGNOSTIC PROCEDURE
     Route: 030
     Dates: start: 20130524, end: 20130524
  2. ALPRAZOLAM [Concomitant]
     Indication: ANXIETY DISORDER

REACTIONS (12)
  - Paralysis [Recovered/Resolved]
  - Toxicity to various agents [Recovered/Resolved]
  - Chest pain [Recovered/Resolved]
  - Panic attack [Recovered/Resolved]
  - Anxiety [Not Recovered/Not Resolved]
  - Hypoaesthesia [Recovered/Resolved]
  - Dysarthria [Recovered/Resolved]
  - Asthenia [Not Recovered/Not Resolved]
  - Disorientation [Not Recovered/Not Resolved]
  - Cognitive disorder [Not Recovered/Not Resolved]
  - Abdominal pain upper [Recovered/Resolved]
  - Nausea [Recovered/Resolved]
